FAERS Safety Report 9402842 (Version 1)
Quarter: 2013Q3

REPORT INFORMATION
  Report Type: Spontaneous
  Country: US (occurrence: None)
  Receive Date: 20130712
  Receipt Date: 20130712
  Transmission Date: 20140515
  Serious: Yes (Other)
  Sender: FDA-Public Use
  Company Number: 2013SA069599

PATIENT
  Age: 29 Year
  Sex: Female

DRUGS (1)
  1. ICY HOT NO MESS [Suspect]
     Dates: start: 20130530

REACTIONS (2)
  - Application site vesicles [None]
  - Application site burn [None]
